FAERS Safety Report 10908362 (Version 1)
Quarter: 2015Q1

REPORT INFORMATION
  Report Type: Spontaneous
  Country: US (occurrence: US)
  Receive Date: 20150312
  Receipt Date: 20150312
  Transmission Date: 20150721
  Serious: Yes (Hospitalization)
  Sender: FDA-Public Use
  Company Number: US-BAXTER-2015BAX012114

PATIENT
  Age: 51 Year
  Sex: Female

DRUGS (2)
  1. GAMMAGARD LIQUID [Suspect]
     Active Substance: HUMAN IMMUNOGLOBULIN G
     Indication: IMMUNODEFICIENCY COMMON VARIABLE
     Route: 042
  2. GAMMAGARD LIQUID [Suspect]
     Active Substance: HUMAN IMMUNOGLOBULIN G
     Dosage: TWO TREATMENTS ONE WEEK APART AT 5 DIFFERENT INJECTION SITES
     Route: 058

REACTIONS (1)
  - Staphylococcal abscess [Recovered/Resolved]
